FAERS Safety Report 5734404-1 (Version None)
Quarter: 2008Q2

REPORT INFORMATION
  Report Type: 
  Country: None (occurrence: None)
  Receive Date: 20080508
  Receipt Date: 20080508
  Transmission Date: 20081010
  Serious: Yes (Hospitalization)
  Sender: FDA-Public Use
  Company Number: None

PATIENT
  Sex: Female
  Weight: 107.9561 kg

DRUGS (2)
  1. REQUIP [Suspect]
     Indication: RESTLESS LEGS SYNDROME
     Dosage: 1MG DAILY PO
     Route: 048
     Dates: start: 20080101, end: 20080505
  2. TRICOR [Suspect]
     Indication: LIP DISORDER
     Dosage: 48MG DAILY PO
     Route: 048
     Dates: start: 20050801, end: 20080301

REACTIONS (2)
  - ASTHENIA [None]
  - RHABDOMYOLYSIS [None]
